FAERS Safety Report 17687562 (Version 3)
Quarter: 2020Q2

REPORT INFORMATION
  Report Type: Spontaneous
  Country: RO (occurrence: RO)
  Receive Date: 20200421
  Receipt Date: 20200504
  Transmission Date: 20200714
  Serious: Yes (Hospitalization, Other)
  Sender: FDA-Public Use
  Company Number: RO-DRREDDYS-GER/ROM/20/0121740

PATIENT
  Age: 55 Year
  Sex: Male

DRUGS (14)
  1. OMEPRAZOLE. [Suspect]
     Active Substance: OMEPRAZOLE
     Indication: GASTRIC DISORDER
  2. PENTOXIFYLLINE. [Suspect]
     Active Substance: PENTOXIFYLLINE
     Indication: SCLERODERMA
  3. GEMCITABINE. [Suspect]
     Active Substance: GEMCITABINE
     Indication: CHEMOTHERAPY
     Dosage: 3 COURSES
     Route: 065
  4. AMLODIPINE BESILATE [Suspect]
     Active Substance: AMLODIPINE BESYLATE
     Indication: VASODILATATION
  5. SULODEXIDE [Suspect]
     Active Substance: SULODEXIDE
     Indication: VASODILATATION
  6. AMLODIPINE BESILATE [Suspect]
     Active Substance: AMLODIPINE BESYLATE
     Indication: SCLERODERMA
  7. OMEPRAZOLE. [Suspect]
     Active Substance: OMEPRAZOLE
     Indication: PROPHYLAXIS AGAINST GASTROINTESTINAL ULCER
  8. METOPROLOL. [Suspect]
     Active Substance: METOPROLOL
     Indication: SCLERODERMA
  9. SULODEXIDE [Suspect]
     Active Substance: SULODEXIDE
     Indication: SCLERODERMA
  10. BOSENTAN. [Suspect]
     Active Substance: BOSENTAN
     Indication: SYSTEMIC SCLERODERMA
     Route: 048
  11. PENTOXIFYLLINE. [Suspect]
     Active Substance: PENTOXIFYLLINE
     Indication: VASODILATATION
  12. CYCLOPHOSPHAMIDE. [Suspect]
     Active Substance: CYCLOPHOSPHAMIDE
     Indication: PRODUCT USED FOR UNKNOWN INDICATION
     Dosage: UNK (INITIALLY 3 COURSES OF PULSE THERAPY, PRESENTLY ON ORAL THERAPY)
  13. CARBOPLATIN. [Suspect]
     Active Substance: CARBOPLATIN
     Indication: CHEMOTHERAPY
     Dosage: 3 COURSES CYCLIC
  14. METHYLPREDNISOLONE. [Suspect]
     Active Substance: METHYLPREDNISOLONE
     Indication: SCLERODERMA

REACTIONS (30)
  - Aphasia [Unknown]
  - Anxiety [Unknown]
  - Pain in extremity [Recovered/Resolved]
  - Peripheral coldness [Recovered/Resolved]
  - Peripheral artery occlusion [Recovered/Resolved]
  - Drug dependence [Unknown]
  - Metastatic neoplasm [Unknown]
  - Hypertension [Unknown]
  - Pallor [Recovered/Resolved]
  - Radiotherapy to brain [Unknown]
  - Leukopenia [Unknown]
  - Metabolic syndrome [Unknown]
  - Hilar lymphadenopathy [Unknown]
  - Extremity necrosis [Unknown]
  - Speech disorder [Unknown]
  - Anaemia [Unknown]
  - Mitral valve prolapse [Unknown]
  - Obesity [Unknown]
  - Biopsy lymph gland [Unknown]
  - Dyslipidaemia [Unknown]
  - Cushing^s syndrome [Unknown]
  - Pleural mass [Unknown]
  - Peripheral ischaemia [Recovered/Resolved]
  - Paraesthesia [Recovered/Resolved]
  - Pulse absent [Recovered/Resolved]
  - Lung adenocarcinoma [Unknown]
  - Glucose tolerance impaired [Unknown]
  - Endarterectomy [Unknown]
  - Inflammation [Unknown]
  - Drug ineffective [Unknown]
